FAERS Safety Report 14261843 (Version 1)
Quarter: 2017Q4

REPORT INFORMATION
  Report Type: Report from Study
  Country: US (occurrence: US)
  Receive Date: 20171208
  Receipt Date: 20171208
  Transmission Date: 20180321
  Serious: No
  Sender: FDA-Public Use
  Company Number: US-AMGEN-USASL2017181983

PATIENT
  Age: 64 Year
  Sex: Female

DRUGS (1)
  1. ENBREL [Suspect]
     Active Substance: ETANERCEPT
     Indication: RHEUMATOID ARTHRITIS
     Dosage: 50 MG, QWK
     Route: 065

REACTIONS (8)
  - Injection site erythema [Unknown]
  - Injection site rash [Unknown]
  - Injection site pruritus [Unknown]
  - Fatigue [Unknown]
  - Asthenia [Unknown]
  - Injection site swelling [Unknown]
  - Injection site bruising [Unknown]
  - Injection site pain [Unknown]
